FAERS Safety Report 19964864 (Version 1)
Quarter: 2021Q4

REPORT INFORMATION
  Report Type: Spontaneous
  Country: US (occurrence: US)
  Receive Date: 20211018
  Receipt Date: 20211018
  Transmission Date: 20220303
  Serious: Yes (Other)
  Sender: FDA-Public Use
  Company Number: US-FRESENIUS MEDICAL CARE RENAL THERAPIES GROUP-FMC-2109-001476

PATIENT
  Age: 62 Year
  Sex: Male
  Weight: 97 kg

DRUGS (3)
  1. DELFLEX WITH DEXTROSE 1.5% LOW MAGNESIUM LOW CALCIUM [Suspect]
     Active Substance: CALCIUM CHLORIDE\DEXTROSE\MAGNESIUM CHLORIDE\SODIUM CHLORIDE\SODIUM LACTATE
     Indication: End stage renal disease
     Dosage: EXCHANGES = 6, FILL VOLUME = 2500 ML, DWELL TIME = 1.0 HOUR 10 MINUTES, LAST FILL = 2500 ML, DAYTIME
     Route: 033
     Dates: start: 20170116
  2. DELFLEX WITH DEXTROSE 2.5% LOW MAGNESIUM LOW CALCIUM [Suspect]
     Active Substance: CALCIUM CHLORIDE\DEXTROSE\MAGNESIUM CHLORIDE\SODIUM CHLORIDE\SODIUM LACTATE
     Indication: End stage renal disease
     Dosage: EXCHANGES = 6, FILL VOLUME = 2500 ML, DWELL TIME = 1.0 HOUR 10 MINUTES, LAST FILL = 2500 ML, DAYTIM
     Route: 033
     Dates: start: 20170116
  3. DELFLEX WITH DEXTROSE 4.25% LOW MAGNESIUM LOW CALCIUM [Suspect]
     Active Substance: CALCIUM CHLORIDE\DEXTROSE\MAGNESIUM CHLORIDE\SODIUM CHLORIDE\SODIUM LACTATE
     Indication: End stage renal disease
     Dosage: EXCHANGES = 6, FILL VOLUME = 2500 ML, DWELL TIME = 1.0 HOUR 10 MINUTES, LAST FILL = 2500 ML, DAYTIM
     Route: 033
     Dates: start: 20170116

REACTIONS (1)
  - Peritonitis bacterial [Not Recovered/Not Resolved]
